FAERS Safety Report 23128753 (Version 1)
Quarter: 2023Q4

REPORT INFORMATION
  Report Type: Spontaneous
  Country: US (occurrence: US)
  Receive Date: 20231031
  Receipt Date: 20231031
  Transmission Date: 20240109
  Serious: No
  Sender: FDA-Public Use
  Company Number: US-BRISTOL-MYERS SQUIBB COMPANY-2023-154252

PATIENT
  Age: 85 Year
  Sex: Male

DRUGS (1)
  1. IDHIFA [Suspect]
     Active Substance: ENASIDENIB MESYLATE
     Indication: Product used for unknown indication
     Dosage: DOSE : UNAVAILABLE;     FREQ : ONE  TAB ONCE DAILY
     Route: 048

REACTIONS (4)
  - Malaise [Unknown]
  - Lethargy [Unknown]
  - Dysphonia [Unknown]
  - General physical health deterioration [Unknown]
